FAERS Safety Report 4310488-2 (Version None)
Quarter: 2004Q1

REPORT INFORMATION
  Report Type: 
  Country: None (occurrence: None)
  Receive Date: 20040303
  Receipt Date: 20040224
  Transmission Date: 20041129
  Serious: Yes (Hospitalization)
  Sender: FDA-Public Use
  Company Number: PHEH2004US02337

PATIENT
  Age: 57 Year
  Sex: Female

DRUGS (6)
  1. ZELNORM [Suspect]
     Indication: IRRITABLE BOWEL SYNDROME
     Dosage: 2 MG, BID FOR TWO WEEKS
     Route: 048
     Dates: start: 20040120
  2. ZELNORM [Suspect]
     Dosage: 6 MG, BID
     Route: 048
     Dates: end: 20040218
  3. ATENOLOL [Concomitant]
  4. ZAROXOLYN [Concomitant]
  5. ALLEGRA [Concomitant]
  6. POTASSIUM [Concomitant]

REACTIONS (7)
  - ABDOMINAL HERNIA OBSTRUCTIVE [None]
  - ABDOMINAL PAIN [None]
  - ABDOMINAL PAIN UPPER [None]
  - DIARRHOEA [None]
  - UMBILICAL HERNIA [None]
  - UMBILICAL HERNIA REPAIR [None]
  - VOMITING [None]
